FAERS Safety Report 15480029 (Version 1)
Quarter: 2018Q4

REPORT INFORMATION
  Report Type: Spontaneous
  Country: BR (occurrence: BR)
  Receive Date: 20181009
  Receipt Date: 20181009
  Transmission Date: 20190205
  Serious: Yes (Other)
  Sender: FDA-Public Use
  Company Number: BR-ABBVIE-18P-020-2490795-00

PATIENT
  Age: 29 Year
  Sex: Female
  Weight: 73 kg

DRUGS (8)
  1. NORTRIPTYLINE [Concomitant]
     Active Substance: NORTRIPTYLINE
     Indication: ANXIETY
     Dosage: 2 UNSPECIFIED DOSE UNIT DAILY. TREATMENT ONGOING.
     Route: 048
     Dates: start: 20170731
  2. DEPAKOTE [Suspect]
     Active Substance: DIVALPROEX SODIUM
     Dosage: START DATE: WHEN DOSE WAS DECREASED FROM 500 MG TO 250 MG
     Route: 048
  3. PHENOBARBITAL. [Concomitant]
     Active Substance: PHENOBARBITAL
     Indication: SEIZURE
     Dosage: 1 UNSPECIFIED DOSE UNIT DAILY. TREATMENT ONGOING.
     Route: 048
     Dates: start: 2008
  4. DEPAKOTE ER [Suspect]
     Active Substance: DIVALPROEX SODIUM
     Indication: SEIZURE
     Dosage: 1 UNSPECIFIED DOSE UNIT DAILY.
     Route: 048
     Dates: start: 201709
  5. DEPAKOTE ER [Suspect]
     Active Substance: DIVALPROEX SODIUM
     Dosage: START DATE: WHEN DOSE WAS DECREASED FROM 500 MG TO 250 MG
     Route: 048
  6. DEPAKOTE ER [Suspect]
     Active Substance: DIVALPROEX SODIUM
     Dosage: START DATE: WHEN DOSE WAS INCREASED FROM 250 MG TO 500 MG AGAIN.
     Route: 048
  7. DEPAKOTE [Suspect]
     Active Substance: DIVALPROEX SODIUM
     Indication: SEIZURE
     Dosage: 1 UNSPECIFIED DOSE UNIT DAILY.
     Route: 048
     Dates: start: 201709
  8. DEPAKOTE [Suspect]
     Active Substance: DIVALPROEX SODIUM
     Dosage: START DATE: WHEN DOSE WAS INCREASED FROM 250 MG TO 500 MG AGAIN.
     Route: 048

REACTIONS (7)
  - Seizure [Recovered/Resolved]
  - Wrong technique in product usage process [Unknown]
  - Tinnitus [Not Recovered/Not Resolved]
  - Product complaint [Unknown]
  - Abdominal discomfort [Recovering/Resolving]
  - Tremor [Not Recovered/Not Resolved]
  - Weight increased [Not Recovered/Not Resolved]

NARRATIVE: CASE EVENT DATE: 2017
